FAERS Safety Report 9319556 (Version 18)
Quarter: 2016Q2

REPORT INFORMATION
  Report Type: Spontaneous
  Country: US (occurrence: US)
  Receive Date: 20130530
  Receipt Date: 20160419
  Transmission Date: 20160815
  Serious: Yes (Hospitalization, Other)
  Sender: FDA-Public Use
  Company Number: US-GLAXOSMITHKLINE-A1006510A

PATIENT
  Age: 52 Year
  Sex: Female

DRUGS (26)
  1. FLOLAN [Suspect]
     Active Substance: EPOPROSTENOL SODIUM
     Dosage: UNK
     Dates: start: 20090608
  2. FLOLAN [Suspect]
     Active Substance: EPOPROSTENOL SODIUM
     Dosage: 32 NG/KG/MINUTE, CO
     Route: 042
  3. COUMADIN [Concomitant]
     Active Substance: WARFARIN SODIUM
  4. FLOLAN [Suspect]
     Active Substance: EPOPROSTENOL SODIUM
     Dosage: UNK
     Dates: start: 20090608
  5. FLOLAN [Suspect]
     Active Substance: EPOPROSTENOL SODIUM
     Dosage: UNK
     Dates: start: 20090608
  6. FLOLAN [Suspect]
     Active Substance: EPOPROSTENOL SODIUM
     Dosage: UNK
  7. FLOLAN [Suspect]
     Active Substance: EPOPROSTENOL SODIUM
     Dosage: 33 NG/KG/MIN CONTINUOUS
     Route: 042
  8. WARFARIN [Suspect]
     Active Substance: WARFARIN
     Indication: PRODUCT USED FOR UNKNOWN INDICATION
     Route: 065
  9. FLOLAN [Suspect]
     Active Substance: EPOPROSTENOL SODIUM
     Dosage: UNK
     Dates: start: 20090608
  10. FLOLAN [Suspect]
     Active Substance: EPOPROSTENOL SODIUM
     Dosage: UNK
     Dates: start: 20090608
  11. FLOLAN [Suspect]
     Active Substance: EPOPROSTENOL SODIUM
     Dosage: 31 NG/KG/MIN CONTINUOUS (CONCENTRATION 60,000 NG/ML, PUMP RATE 86 ML/DAY, VIAL STRENGTH 1.5 MG)
     Route: 042
  12. FLOLAN [Suspect]
     Active Substance: EPOPROSTENOL SODIUM
     Dosage: UNK
     Dates: start: 20090608
  13. FLOLAN [Suspect]
     Active Substance: EPOPROSTENOL SODIUM
     Dosage: 30 NG/KG/MIN, 60,000 NG/ML CONCENTRATION, 83 ML/DAY PUMP RATE, 1.5 MG VIAL STRENGTH
     Route: 042
  14. FLOLAN [Suspect]
     Active Substance: EPOPROSTENOL SODIUM
     Dosage: 30 NG/KG/MIN CONTINUOUS
  15. FLOLAN [Suspect]
     Active Substance: EPOPROSTENOL SODIUM
     Dosage: 33 NG/KG/MIN, CO
     Route: 042
  16. FLOLAN [Suspect]
     Active Substance: EPOPROSTENOL SODIUM
     Dosage: 33 NG/KG/MIN CONTINUOUS
     Route: 042
  17. FLOLAN [Suspect]
     Active Substance: EPOPROSTENOL SODIUM
     Dosage: UNK
     Dates: start: 20090608
  18. FLOLAN [Suspect]
     Active Substance: EPOPROSTENOL SODIUM
     Dosage: 31 NG/KG/MIN CONTINUOUS
  19. SODIUM CHLORIDE. [Suspect]
     Active Substance: SODIUM CHLORIDE
     Indication: CATHETER MANAGEMENT
     Dosage: UNK, U
     Route: 042
  20. FLOLAN [Suspect]
     Active Substance: EPOPROSTENOL SODIUM
     Dosage: 33 NG/KG/MIN CONTINUOUS
     Route: 042
  21. FLOLAN [Suspect]
     Active Substance: EPOPROSTENOL SODIUM
     Indication: PULMONARY ARTERIAL HYPERTENSION
     Dosage: CONCENTRATION: 60,000 NG/MLVIAL STRENGTH: 1.5 MGDOSE: 28 NG/KG/MIN, CONCENTRATION 60000 NG/ML, [...]
     Route: 042
     Dates: start: 20090608
  22. FLOLAN [Suspect]
     Active Substance: EPOPROSTENOL SODIUM
     Dosage: UNK
     Dates: start: 20090608
  23. FLOLAN [Suspect]
     Active Substance: EPOPROSTENOL SODIUM
     Dosage: UNK
     Dates: start: 20090608
  24. FLOLAN [Suspect]
     Active Substance: EPOPROSTENOL SODIUM
     Dosage: 115 NG/KG/MIN, 60,000 NG/ML CONCENTRATION, 83 ML/DAY PUMP RATE, 1.5 MG VIAL STRENGTH
  25. FLOLAN [Suspect]
     Active Substance: EPOPROSTENOL SODIUM
     Dosage: 4.5 MG, UNK
     Route: 042
  26. HEPARIN [Suspect]
     Active Substance: HEPARIN SODIUM
     Indication: PRODUCT USED FOR UNKNOWN INDICATION
     Dosage: UNK, U

REACTIONS (26)
  - Complication associated with device [Recovered/Resolved]
  - Drug administration error [Recovered/Resolved]
  - Coagulation test abnormal [Unknown]
  - Cystitis [Unknown]
  - Fungal infection [Unknown]
  - Diverticulum [Unknown]
  - Colon operation [Unknown]
  - Tooth fracture [Unknown]
  - Nephrolithiasis [Not Recovered/Not Resolved]
  - Hospitalisation [Unknown]
  - Injury associated with device [Unknown]
  - Nasopharyngitis [Not Recovered/Not Resolved]
  - Catheter site inflammation [Unknown]
  - Device use error [Unknown]
  - Back pain [Unknown]
  - Urinary tract infection [Unknown]
  - Flushing [Unknown]
  - Kidney infection [Unknown]
  - Intestinal perforation [Unknown]
  - Diagnostic procedure [Unknown]
  - Abscess [Unknown]
  - Pain in extremity [Unknown]
  - Diverticulitis [Unknown]
  - Influenza [Not Recovered/Not Resolved]
  - Neuralgia [Unknown]
  - Muscle spasms [Unknown]

NARRATIVE: CASE EVENT DATE: 20121220
